FAERS Safety Report 16243704 (Version 1)
Quarter: 2019Q2

REPORT INFORMATION
  Report Type: Spontaneous
  Country: US (occurrence: US)
  Receive Date: 20190426
  Receipt Date: 20190426
  Transmission Date: 20190711
  Serious: No
  Sender: FDA-Public Use
  Company Number: US-PFIZER INC-2019168779

PATIENT
  Age: 44 Year
  Sex: Female
  Weight: 86.17 kg

DRUGS (2)
  1. NP THYROID [Concomitant]
     Active Substance: LEVOTHYROXINE\LIOTHYRONINE
     Indication: AUTOIMMUNE THYROIDITIS
     Dosage: 90 MG, 1X/DAY
     Dates: start: 2009
  2. SULFASALAZINE. [Suspect]
     Active Substance: SULFASALAZINE
     Indication: ARTHRITIS
     Dosage: 500 MG, DAILY
     Route: 048
     Dates: start: 20190228

REACTIONS (2)
  - Product use in unapproved indication [Unknown]
  - Feeling abnormal [Unknown]

NARRATIVE: CASE EVENT DATE: 20190228
